FAERS Safety Report 15523851 (Version 1)
Quarter: 2018Q4

REPORT INFORMATION
  Report Type: Spontaneous
  Country: US (occurrence: US)
  Receive Date: 20181018
  Receipt Date: 20181018
  Transmission Date: 20190205
  Serious: Yes (Hospitalization)
  Sender: FDA-Public Use
  Company Number: US-009507513-0601USA02019

PATIENT
  Age: 62 Year
  Sex: Male

DRUGS (6)
  1. LIPITOR [Concomitant]
     Active Substance: ATORVASTATIN CALCIUM
     Dosage: 10 MG, UNK
  2. ZETIA [Suspect]
     Active Substance: EZETIMIBE
     Dosage: 10 MG, QD
     Dates: start: 200408
  3. CRESTOR [Interacting]
     Active Substance: ROSUVASTATIN CALCIUM
     Dosage: 5 MG, UNK
     Route: 048
     Dates: start: 20040305, end: 20050726
  4. ZOLOFT [Concomitant]
     Active Substance: SERTRALINE HYDROCHLORIDE
  5. WELLBUTRIN XL [Concomitant]
     Active Substance: BUPROPION HYDROCHLORIDE
     Dosage: 0.5 DF, QD
  6. UBIDECARENONE [Concomitant]
     Active Substance: UBIDECARENONE

REACTIONS (7)
  - Drug interaction [Recovering/Resolving]
  - Renal tubular necrosis [Recovering/Resolving]
  - Heat stroke [Recovering/Resolving]
  - Injury [Recovering/Resolving]
  - Renal failure [Recovered/Resolved]
  - Rhabdomyolysis [Recovering/Resolving]
  - Fall [Recovering/Resolving]

NARRATIVE: CASE EVENT DATE: 20050712
